FAERS Safety Report 8170330-9 (Version None)
Quarter: 2012Q1

REPORT INFORMATION
  Report Type: 
  Country: None (occurrence: None)
  Receive Date: 20120228
  Receipt Date: 20120223
  Transmission Date: 20120608
  Serious: Yes (Death)
  Sender: FDA-Public Use
  Company Number: US-ASTELLAS-2011US008356

PATIENT
  Sex: Male

DRUGS (13)
  1. FLUCONAZOLE [Concomitant]
     Indication: PRODUCT USED FOR UNKNOWN INDICATION
     Dosage: 400 MG, UID/QD
     Route: 048
  2. PROGRAF [Suspect]
     Dosage: 2.5 MG, BID
     Route: 048
  3. AZATHIOPRINE [Concomitant]
     Indication: PRODUCT USED FOR UNKNOWN INDICATION
     Dosage: 100 MG, UID/QD
     Route: 048
  4. AQUADEKS [Concomitant]
     Indication: PRODUCT USED FOR UNKNOWN INDICATION
     Dosage: 2 DF, UID/QD
     Route: 065
  5. PENICILLIN VK [Concomitant]
     Indication: PRODUCT USED FOR UNKNOWN INDICATION
     Dosage: 250 MG, BID
     Route: 065
  6. TRAZODONE HCL [Concomitant]
     Indication: PRODUCT USED FOR UNKNOWN INDICATION
     Dosage: 50 MG, QHS
     Route: 065
  7. URSODIOL [Concomitant]
     Indication: PRODUCT USED FOR UNKNOWN INDICATION
     Dosage: 300 MG, BID
     Route: 048
  8. MELATONIN [Concomitant]
     Indication: SLEEP DISORDER
     Dosage: 6 MG, QHS
     Route: 048
  9. HYDROCODONE BITARTRATE AND ACETAMINOPHEN [Concomitant]
     Indication: ABDOMINAL PAIN
     Dosage: 10/325 MG, EVERY 6 HOURS PRN
     Route: 048
  10. PROGRAF [Suspect]
     Indication: LIVER TRANSPLANT
     Dosage: 0.5 MG, BID
     Route: 048
     Dates: start: 20040423, end: 20111130
  11. CEFUROXIME AXETIL [Concomitant]
     Indication: PRODUCT USED FOR UNKNOWN INDICATION
     Dosage: 500 MG, UID/QD
     Route: 065
  12. OXYCODONE HCL [Concomitant]
     Indication: PRODUCT USED FOR UNKNOWN INDICATION
     Dosage: 5 MG, Q6 HOURS
     Route: 065
  13. CIPROFLOXACIN [Concomitant]
     Indication: PRODUCT USED FOR UNKNOWN INDICATION
     Dosage: 500 MG, UID/QD
     Route: 065

REACTIONS (1)
  - HEPATIC FAILURE [None]
